FAERS Safety Report 12445628 (Version 1)
Quarter: 2016Q2

REPORT INFORMATION
  Report Type: Spontaneous
  Country: US (occurrence: US)
  Receive Date: 20160608
  Receipt Date: 20160608
  Transmission Date: 20160815
  Serious: No
  Sender: FDA-Public Use
  Company Number: US-JNJFOC-20160503719

PATIENT
  Age: 92 Year
  Sex: Male
  Weight: 70.31 kg

DRUGS (1)
  1. TYLENOL EXTRA STRENGTH [Suspect]
     Active Substance: ACETAMINOPHEN
     Indication: PAIN
     Dosage: TOOK TWO SETS OF TWO TABLETS ABOUT 5 TO 10 MINUTES APART
     Route: 048
     Dates: start: 20160503, end: 20160503

REACTIONS (4)
  - Expired product administered [Unknown]
  - Product use issue [Unknown]
  - Extra dose administered [Unknown]
  - Off label use [Unknown]

NARRATIVE: CASE EVENT DATE: 20160503
